FAERS Safety Report 8435962 (Version 5)
Quarter: 2014Q1

REPORT INFORMATION
  Report Type: Spontaneous
  Country: JP (occurrence: None)
  Receive Date: 20120217
  Receipt Date: 20140324
  Transmission Date: 20141002
  Serious: Yes (Hospitalization, Other)
  Sender: FDA-Public Use
  Company Number: ADR-2011-10452

PATIENT
  Age: 45 Year
  Sex: Male
  Weight: 71 kg

DRUGS (11)
  1. GABALON [Suspect]
     Indication: MUSCLE SPASTICITY
     Dosage: SEE B5
  2. LIORESAL [Suspect]
  3. MOTONALIN [Suspect]
     Dates: end: 20110524
  4. PREDNISONE [Suspect]
  5. OLMETEC [Suspect]
  6. FAMOTIDINE [Suspect]
  7. ACTONEL [Suspect]
  8. HORIZON [Concomitant]
  9. DANTRIUM [Concomitant]
  10. CERCINE [Concomitant]
  11. BOTOX [Concomitant]

REACTIONS (12)
  - Cellulitis [None]
  - Peroneal nerve palsy [None]
  - Compartment syndrome [None]
  - Pseudomembranous colitis [None]
  - Muscle spasticity [None]
  - Dyspnoea [None]
  - Post procedural complication [None]
  - Muscle spasticity [None]
  - Muscle contracture [None]
  - Hyperhidrosis [None]
  - Tropical spastic paresis [None]
  - Condition aggravated [None]
